FAERS Safety Report 4545594-0 (Version None)
Quarter: 2005Q1

REPORT INFORMATION
  Report Type: 
  Country: None (occurrence: None)
  Receive Date: 20050103
  Receipt Date: 20041216
  Transmission Date: 20050727
  Serious: Yes (Other)
  Sender: FDA-Public Use
  Company Number: US_000746312

PATIENT
  Age: 35 Year
  Sex: Female
  Weight: 65 kg

DRUGS (4)
  1. PROZAC [Suspect]
     Indication: DEPRESSION
     Dosage: 10 MG DAY
     Dates: start: 19980820
  2. AMOXICILLIN [Concomitant]
  3. SINUTAB [Concomitant]
  4. HORMONES [Concomitant]

REACTIONS (11)
  - ADVERSE EVENT [None]
  - DRUG HYPERSENSITIVITY [None]
  - EPIDERMAL NECROSIS [None]
  - LYMPHOMATOID PAPULOSIS [None]
  - RASH ERYTHEMATOUS [None]
  - RASH GENERALISED [None]
  - RASH MACULO-PAPULAR [None]
  - RASH PUSTULAR [None]
  - SCAB [None]
  - SKIN INFECTION [None]
  - URTICARIA [None]
